FAERS Safety Report 4504387-0 (Version None)
Quarter: 2004Q4

REPORT INFORMATION
  Report Type: 
  Country: None (occurrence: None)
  Receive Date: 20041118
  Receipt Date: 20041014
  Transmission Date: 20050328
  Serious: Yes (Hospitalization)
  Sender: FDA-Public Use
  Company Number: PL-ROCHE-383263

PATIENT
  Age: 57 Year
  Sex: Male

DRUGS (6)
  1. INTERFERON ALFA-2A [Suspect]
     Indication: METASTATIC MALIGNANT MELANOMA
     Dosage: ADMINISTERED ON DAYS 11 AND 18 OF A 28 DAY CYCLE.
     Route: 058
     Dates: start: 20040810, end: 20040920
  2. DACARBAZINE [Suspect]
     Indication: METASTATIC MALIGNANT MELANOMA
     Dosage: ADMINISTERED ON DAY 1 OF A 28 DAY CYCLE
     Route: 042
     Dates: start: 20040730, end: 20040920
  3. TRAMAL [Concomitant]
     Indication: PAIN
     Dates: start: 20040721
  4. UNSPECIFIED DRUG [Concomitant]
     Dosage: REPORTED AS ENPHITIN
     Dates: start: 20040721
  5. ZOFRAN [Concomitant]
     Dates: start: 20040721
  6. UNSPECIFIED DRUG [Concomitant]
     Dates: start: 20040721

REACTIONS (3)
  - DYSPNOEA [None]
  - FATIGUE [None]
  - PLEURAL EFFUSION [None]
